FAERS Safety Report 21492989 (Version 2)
Quarter: 2022Q4

REPORT INFORMATION
  Report Type: Report from Study
  Country: DE (occurrence: DE)
  Receive Date: 20221021
  Receipt Date: 20221028
  Transmission Date: 20230113
  Serious: Yes (Hospitalization)
  Sender: FDA-Public Use
  Company Number: DE-TAKEDA-2022TUS033799

PATIENT
  Age: 10 Year
  Sex: Male

DRUGS (46)
  1. TEDUGLUTIDE [Suspect]
     Active Substance: TEDUGLUTIDE
     Indication: Short-bowel syndrome
     Dosage: 1.5 MILLIGRAM, QD
     Route: 042
     Dates: start: 20220102, end: 20220330
  2. TEDUGLUTIDE [Suspect]
     Active Substance: TEDUGLUTIDE
     Indication: Short-bowel syndrome
     Dosage: 1.5 MILLIGRAM, QD
     Route: 042
     Dates: start: 20220102, end: 20220330
  3. TEDUGLUTIDE [Suspect]
     Active Substance: TEDUGLUTIDE
     Indication: Short-bowel syndrome
     Dosage: 1.5 MILLIGRAM, QD
     Route: 042
     Dates: start: 20220102, end: 20220330
  4. TEDUGLUTIDE [Suspect]
     Active Substance: TEDUGLUTIDE
     Indication: Short-bowel syndrome
     Dosage: 1.5 MILLIGRAM, QD
     Route: 042
     Dates: start: 20220102, end: 20220330
  5. TEDUGLUTIDE [Suspect]
     Active Substance: TEDUGLUTIDE
     Dosage: 1.8 MILLIGRAM, QD
     Route: 042
     Dates: start: 20220331, end: 20220407
  6. TEDUGLUTIDE [Suspect]
     Active Substance: TEDUGLUTIDE
     Dosage: 1.8 MILLIGRAM, QD
     Route: 042
     Dates: start: 20220331, end: 20220407
  7. TEDUGLUTIDE [Suspect]
     Active Substance: TEDUGLUTIDE
     Dosage: 1.8 MILLIGRAM, QD
     Route: 042
     Dates: start: 20220331, end: 20220407
  8. TEDUGLUTIDE [Suspect]
     Active Substance: TEDUGLUTIDE
     Dosage: 1.8 MILLIGRAM, QD
     Route: 042
     Dates: start: 20220331, end: 20220407
  9. TEDUGLUTIDE [Suspect]
     Active Substance: TEDUGLUTIDE
     Dosage: 1.5 MILLIGRAM, QD
     Route: 042
     Dates: start: 20220408
  10. TEDUGLUTIDE [Suspect]
     Active Substance: TEDUGLUTIDE
     Dosage: 1.5 MILLIGRAM, QD
     Route: 042
     Dates: start: 20220408
  11. TEDUGLUTIDE [Suspect]
     Active Substance: TEDUGLUTIDE
     Dosage: 1.5 MILLIGRAM, QD
     Route: 042
     Dates: start: 20220408
  12. TEDUGLUTIDE [Suspect]
     Active Substance: TEDUGLUTIDE
     Dosage: 1.5 MILLIGRAM, QD
     Route: 042
     Dates: start: 20220408
  13. URSODIOL [Concomitant]
     Active Substance: URSODIOL
     Indication: Cholelithiasis
     Dosage: 200 MILLIGRAM, BID
     Route: 048
     Dates: start: 20180501, end: 20190917
  14. URSODIOL [Concomitant]
     Active Substance: URSODIOL
     Dosage: 250 MILLIGRAM, BID
     Route: 048
     Dates: start: 20190918
  15. URSODIOL [Concomitant]
     Active Substance: URSODIOL
     Dosage: 250 MILLIGRAM, QD
     Route: 048
     Dates: start: 20220331
  16. URSODIOL [Concomitant]
     Active Substance: URSODIOL
     Dosage: 500 MILLIGRAM, QD
     Route: 048
     Dates: start: 20220331
  17. RIVAROXABAN [Concomitant]
     Active Substance: RIVAROXABAN
     Indication: Factor V Leiden mutation
     Dosage: 5 MILLIGRAM, BID
     Route: 048
     Dates: start: 202109, end: 20220330
  18. RIVAROXABAN [Concomitant]
     Active Substance: RIVAROXABAN
     Dosage: 15 MILLIGRAM, QD
     Route: 048
     Dates: start: 20220331
  19. OMEPRAZOLE [Concomitant]
     Active Substance: OMEPRAZOLE
     Indication: Gastric dilatation
     Dosage: 10 MILLIGRAM, BID
     Route: 048
     Dates: start: 20170930
  20. ENOXAPARIN [Concomitant]
     Active Substance: ENOXAPARIN
     Indication: Factor V Leiden mutation
     Dosage: 20 MILLIGRAM, QD
     Route: 058
     Dates: start: 20160429, end: 20190812
  21. ENOXAPARIN [Concomitant]
     Active Substance: ENOXAPARIN
     Dosage: 20 MILLIGRAM, QD
     Route: 058
     Dates: start: 20190820, end: 20210420
  22. ENOXAPARIN [Concomitant]
     Active Substance: ENOXAPARIN
     Dosage: 25 MILLIGRAM, QD
     Route: 058
     Dates: start: 20210421, end: 202109
  23. OXCARBAZEPINE [Concomitant]
     Active Substance: OXCARBAZEPINE
     Indication: Epilepsy
     Dosage: 180 MILLIGRAM, BID
     Route: 048
     Dates: start: 20170601, end: 20190404
  24. OXCARBAZEPINE [Concomitant]
     Active Substance: OXCARBAZEPINE
     Dosage: 240 MILLIGRAM, BID
     Route: 048
     Dates: start: 20190405, end: 20210309
  25. OXCARBAZEPINE [Concomitant]
     Active Substance: OXCARBAZEPINE
     Dosage: 250 MILLIGRAM
     Route: 048
     Dates: start: 20210310
  26. OXCARBAZEPINE [Concomitant]
     Active Substance: OXCARBAZEPINE
     Dosage: 360 MILLIGRAM
     Route: 048
     Dates: start: 20210310
  27. DIAZEPAM [Concomitant]
     Active Substance: DIAZEPAM
     Indication: Epilepsy
     Dosage: 10 MILLIGRAM
     Route: 048
     Dates: start: 20140219
  28. METAMIZOL [Concomitant]
     Active Substance: METAMIZOLE SODIUM
     Indication: Pain
     Dosage: 1.3 GRAM
     Route: 042
     Dates: start: 20190814, end: 20190815
  29. PIPERACILLIN SODIUM\TAZOBACTAM SODIUM [Concomitant]
     Active Substance: PIPERACILLIN SODIUM\TAZOBACTAM SODIUM
     Indication: Device related infection
     Dosage: 750 MILLIGRAM, TID
     Route: 042
     Dates: start: 20190722, end: 20190723
  30. PIPERACILLIN SODIUM\TAZOBACTAM SODIUM [Concomitant]
     Active Substance: PIPERACILLIN SODIUM\TAZOBACTAM SODIUM
     Dosage: 1500 MILLIGRAM, TID
     Route: 042
     Dates: start: 20190910, end: 20190922
  31. VANCOMYCIN [Concomitant]
     Active Substance: VANCOMYCIN
     Indication: Device related infection
     Dosage: 350 MILLIGRAM, TID
     Route: 042
     Dates: start: 20190722, end: 20190722
  32. VANCOMYCIN [Concomitant]
     Active Substance: VANCOMYCIN
     Indication: Bacillus infection
     Dosage: 380 MILLIGRAM, TID
     Route: 042
     Dates: start: 20190723, end: 20190725
  33. VANCOMYCIN [Concomitant]
     Active Substance: VANCOMYCIN
     Dosage: 400 MILLIGRAM, BID
     Route: 042
     Dates: start: 20190807, end: 20190807
  34. VANCOMYCIN [Concomitant]
     Active Substance: VANCOMYCIN
     Dosage: 300 MILLIGRAM, BID
     Route: 042
     Dates: start: 20190908, end: 20190908
  35. VANCOMYCIN [Concomitant]
     Active Substance: VANCOMYCIN
     Dosage: 450 MILLIGRAM, BID
     Route: 042
     Dates: start: 20190908, end: 20190908
  36. MEROPENEM [Concomitant]
     Active Substance: MEROPENEM
     Indication: Device related infection
     Dosage: 450 MILLIGRAM, TID
     Route: 042
     Dates: start: 20190723, end: 20190802
  37. MEROPENEM [Concomitant]
     Active Substance: MEROPENEM
     Dosage: 450 MILLIGRAM, TID
     Route: 042
     Dates: start: 20190806, end: 20190808
  38. MEROPENEM [Concomitant]
     Active Substance: MEROPENEM
     Dosage: 500 MILLIGRAM, TID
     Route: 042
     Dates: start: 20190908, end: 20190910
  39. CLINDAMYCIN [Concomitant]
     Active Substance: CLINDAMYCIN
     Indication: Device related infection
     Dosage: 250 MILLIGRAM, TID
     Route: 042
     Dates: start: 20190808, end: 20190822
  40. CLINDAMYCIN [Concomitant]
     Active Substance: CLINDAMYCIN
     Dosage: 150 MILLIGRAM, TID
     Route: 042
     Dates: start: 20190908, end: 20190910
  41. HEPARIN [Concomitant]
     Active Substance: HEPARIN SODIUM
     Indication: Thrombosis
     Dosage: UNK
     Route: 042
     Dates: start: 20190814, end: 20190820
  42. HEPARIN [Concomitant]
     Active Substance: HEPARIN SODIUM
     Indication: Prophylaxis
  43. CLEMASTINE [Concomitant]
     Active Substance: CLEMASTINE
     Indication: Drug hypersensitivity
     Dosage: 0.7 MILLIGRAM, QD
     Route: 042
     Dates: start: 20190807, end: 20190807
  44. NEOSTIGMINE [Concomitant]
     Active Substance: NEOSTIGMINE
     Indication: Mobility decreased
     Dosage: 0.37 MILLIGRAM, BID
     Route: 042
     Dates: start: 202011, end: 20210108
  45. CEFUROXIME [Concomitant]
     Active Substance: CEFUROXIME
     Indication: Catheter management
     Dosage: UNK, QD
     Route: 048
     Dates: start: 20210924, end: 20210925
  46. CEFUROXIME [Concomitant]
     Active Substance: CEFUROXIME
     Dosage: 980 MILLIGRAM, QD
     Route: 042
     Dates: start: 20210924, end: 20210925

REACTIONS (2)
  - Atrial septal defect [Not Recovered/Not Resolved]
  - Vomiting [Not Recovered/Not Resolved]

NARRATIVE: CASE EVENT DATE: 20220202
